FAERS Safety Report 9679140 (Version 3)
Quarter: 2013Q4

REPORT INFORMATION
  Report Type: Report from Study
  Country: CA (occurrence: CA)
  Receive Date: 20131108
  Receipt Date: 20131218
  Transmission Date: 20140711
  Serious: Yes (Hospitalization, Other)
  Sender: FDA-Public Use
  Company Number: CA-ABBVIE-10P-028-0653438-00

PATIENT
  Age: 36 Year
  Sex: Female
  Weight: 99.88 kg

DRUGS (4)
  1. HUMIRA 40 MG/0.8 ML PEN [Suspect]
     Indication: CROHN^S DISEASE
     Route: 058
     Dates: start: 20100326, end: 20100326
  2. HUMIRA 40 MG/0.8 ML PEN [Suspect]
  3. IMURAN [Concomitant]
     Indication: CROHN^S DISEASE
     Route: 048
     Dates: start: 2003
  4. VENTOLIN [Concomitant]
     Indication: ASTHMA

REACTIONS (18)
  - Crohn^s disease [Recovered/Resolved]
  - Abdominal pain [Recovered/Resolved]
  - Abdominal pain upper [Recovered/Resolved]
  - Abdominal pain [Unknown]
  - Abdominal pain upper [Recovered/Resolved]
  - Abdominal pain [Recovered/Resolved]
  - Abdominal pain upper [Unknown]
  - Abdominal abscess [Unknown]
  - Intestinal fistula [Unknown]
  - Crohn^s disease [Unknown]
  - Colectomy [Unknown]
  - Abdominal abscess [Recovered/Resolved]
  - Incision site pain [Unknown]
  - Small intestinal resection [Unknown]
  - Abscess [Recovering/Resolving]
  - Fistula [Recovering/Resolving]
  - Crohn^s disease [Not Recovered/Not Resolved]
  - Arthritis [Not Recovered/Not Resolved]
